FAERS Safety Report 14995895 (Version 1)
Quarter: 2018Q2

REPORT INFORMATION
  Report Type: Spontaneous
  Country: US (occurrence: US)
  Receive Date: 20180611
  Receipt Date: 20180611
  Transmission Date: 20180711
  Serious: Yes (Other)
  Sender: FDA-Public Use
  Company Number: US-TARO PHARMACEUTICALS USA.,INC-2018SUN00296

PATIENT
  Age: 66 Year
  Sex: Male

DRUGS (4)
  1. KETOCONAZOLE. [Suspect]
     Active Substance: KETOCONAZOLE
     Indication: EAR INFECTION FUNGAL
     Dosage: 200 MG, BID
     Route: 048
  2. KETOCONAZOLE. [Suspect]
     Active Substance: KETOCONAZOLE
     Indication: GENITAL INFECTION FUNGAL
  3. FLUCONAZOLE. [Suspect]
     Active Substance: FLUCONAZOLE
     Indication: GENITAL INFECTION FUNGAL
     Dosage: UNK
     Route: 061
  4. FLUCONAZOLE. [Suspect]
     Active Substance: FLUCONAZOLE
     Indication: EAR INFECTION FUNGAL

REACTIONS (18)
  - Alcohol intolerance [Recovering/Resolving]
  - Food allergy [Recovering/Resolving]
  - Flushing [Recovering/Resolving]
  - Dyspnoea [Recovering/Resolving]
  - Paraesthesia [Recovering/Resolving]
  - Asthenia [Recovering/Resolving]
  - Type I hypersensitivity [Recovering/Resolving]
  - Blepharitis allergic [Recovering/Resolving]
  - Dehydration [Recovering/Resolving]
  - Multiple chemical sensitivity [Recovering/Resolving]
  - Tremor [Recovering/Resolving]
  - Hypotension [Recovering/Resolving]
  - Burning sensation [Recovering/Resolving]
  - Angioedema [Recovering/Resolving]
  - Headache [Recovering/Resolving]
  - Tinnitus [Recovering/Resolving]
  - Nausea [Recovering/Resolving]
  - Weight decreased [Recovering/Resolving]
